FAERS Safety Report 13622671 (Version 1)
Quarter: 2017Q2

REPORT INFORMATION
  Report Type: Report from Study
  Country: None (occurrence: BR)
  Receive Date: 20170607
  Receipt Date: 20170607
  Transmission Date: 20170830
  Serious: Yes (Other)
  Sender: FDA-Public Use
  Company Number: BR-ABBVIE-17K-020-1999455-00

PATIENT
  Sex: Female
  Weight: 94 kg

DRUGS (6)
  1. DIACEREIN [Concomitant]
     Active Substance: DIACEREIN
     Indication: FIBROMYALGIA
     Route: 048
     Dates: start: 2016
  2. HUMIRA [Suspect]
     Active Substance: ADALIMUMAB
     Indication: CROHN^S DISEASE
     Route: 058
     Dates: start: 20170307
  3. TRIAMCINOLONE [Concomitant]
     Active Substance: TRIAMCINOLONE
     Indication: FIBROMYALGIA
     Route: 048
     Dates: start: 2016
  4. HYDROXYCHLOROQUINE [Concomitant]
     Active Substance: HYDROXYCHLOROQUINE
     Indication: FIBROMYALGIA
     Route: 048
     Dates: start: 2016
  5. AZATHIOPRINE. [Concomitant]
     Active Substance: AZATHIOPRINE
     Indication: CROHN^S DISEASE
     Route: 048
  6. CYCLOBENZAPRINE. [Concomitant]
     Active Substance: CYCLOBENZAPRINE
     Indication: FIBROMYALGIA
     Route: 048
     Dates: start: 2016

REACTIONS (2)
  - Auditory disorder [Recovering/Resolving]
  - Urinary tract infection bacterial [Unknown]

NARRATIVE: CASE EVENT DATE: 2017
